FAERS Safety Report 9995107 (Version 1)
Quarter: 2014Q1

REPORT INFORMATION
  Report Type: Spontaneous
  Country: US (occurrence: None)
  Receive Date: 20140218
  Receipt Date: 20140218
  Transmission Date: 20141002
  Serious: Yes (Other)
  Sender: FDA-Public Use
  Company Number: 1000051657

PATIENT
  Sex: Male

DRUGS (3)
  1. VIIBRYD [Suspect]
     Dosage: 7 D, 10 MG (10 MG, 1 IN 1 D)?
  2. VIIBRYD [Suspect]
     Dosage: 40 MG (40 MG, 1 IN 1 D), ORAL
     Route: 048
  3. ESCITALOPRAM [Suspect]

REACTIONS (3)
  - Serotonin syndrome [None]
  - Anxiety [None]
  - Medication error [None]
